FAERS Safety Report 14362545 (Version 2)
Quarter: 2018Q3

REPORT INFORMATION
  Report Type: Report from Study
  Country: None (occurrence: US)
  Receive Date: 20180108
  Receipt Date: 20180713
  Transmission Date: 20181010
  Serious: Yes (Hospitalization, Other)
  Sender: FDA-Public Use
  Company Number: US-ABBVIE-17K-163-2017726-00

PATIENT
  Age: 59 Year
  Sex: Female

DRUGS (2)
  1. HUMIRA [Suspect]
     Active Substance: ADALIMUMAB
     Indication: COLITIS ULCERATIVE
     Route: 058
  2. HUMIRA [Suspect]
     Active Substance: ADALIMUMAB
     Route: 058

REACTIONS (15)
  - Hernial eventration [Unknown]
  - Anaemia [Unknown]
  - Frequent bowel movements [Recovering/Resolving]
  - Pyrexia [Unknown]
  - Drug ineffective [Unknown]
  - Diaphragmatic rupture [Unknown]
  - Furuncle [Unknown]
  - Haematochezia [Unknown]
  - Nodule [Unknown]
  - Pneumothorax [Unknown]
  - Bacterial infection [Unknown]
  - Psoriasis [Unknown]
  - Dyspnoea [Unknown]
  - Colitis ulcerative [Recovered/Resolved with Sequelae]
  - Oesophageal infection [Unknown]

NARRATIVE: CASE EVENT DATE: 2002
